FAERS Safety Report 8337615-4 (Version None)
Quarter: 2012Q2

REPORT INFORMATION
  Report Type: 
  Country: None (occurrence: None)
  Receive Date: 20120504
  Receipt Date: 20120425
  Transmission Date: 20120825
  Serious: Yes (Hospitalization, Other)
  Sender: FDA-Public Use
  Company Number: PHEH2012US004328

PATIENT
  Sex: Female

DRUGS (3)
  1. GILENYA [Suspect]
     Indication: MULTIPLE SCLEROSIS
     Dosage: 0.5 MG, QD
     Route: 048
     Dates: start: 20111110, end: 20120213
  2. HYDROCHLOROTHIAZIDE [Concomitant]
     Dosage: 25 MG, DAILY
     Route: 048
  3. SPIRONOLACTONE [Concomitant]
     Dosage: 100 MG, DAILY
     Route: 048

REACTIONS (8)
  - ABDOMINAL PAIN [None]
  - ABDOMINAL MASS [None]
  - ADNEXA UTERI MASS [None]
  - ABDOMINAL PAIN LOWER [None]
  - PELVIC MASS [None]
  - PELVIC PAIN [None]
  - OVARIAN CANCER [None]
  - SARCOMA [None]
